FAERS Safety Report 19350719 (Version 1)
Quarter: 2021Q2

REPORT INFORMATION
  Report Type: Spontaneous
  Country: US (occurrence: US)
  Receive Date: 20210531
  Receipt Date: 20210531
  Transmission Date: 20210717
  Serious: Yes (Death, Other)
  Sender: FDA-Public Use
  Company Number: US-SA-2021SA178985

PATIENT
  Age: 80 Year
  Sex: Female

DRUGS (1)
  1. ZANTAC [Suspect]
     Active Substance: RANITIDINE HYDROCHLORIDE
     Indication: DYSPEPSIA
     Dosage: UNK, QD
     Dates: start: 200801, end: 201803

REACTIONS (4)
  - Hepatic cancer stage IV [Fatal]
  - Ovarian cancer stage IV [Fatal]
  - Uterine cancer [Fatal]
  - Colorectal cancer stage IV [Fatal]

NARRATIVE: CASE EVENT DATE: 20160901
